FAERS Safety Report 16680661 (Version 1)
Quarter: 2019Q3

REPORT INFORMATION
  Report Type: Spontaneous
  Country: US (occurrence: US)
  Receive Date: 20190808
  Receipt Date: 20190808
  Transmission Date: 20191004
  Serious: No
  Sender: FDA-Public Use
  Company Number: US-ASTRAZENECA-2019SF01433

PATIENT
  Age: 956 Month
  Sex: Male
  Weight: 113.4 kg

DRUGS (1)
  1. SYMBICORT [Suspect]
     Active Substance: BUDESONIDE\FORMOTEROL FUMARATE DIHYDRATE
     Indication: DYSPNOEA
     Dosage: 160/4.5MCG TWO TIMES A DAY
     Route: 055
     Dates: start: 20190107, end: 20190626

REACTIONS (7)
  - Choking [Not Recovered/Not Resolved]
  - Tongue disorder [Not Recovered/Not Resolved]
  - Upper respiratory tract infection [Recovered/Resolved]
  - Candida infection [Not Recovered/Not Resolved]
  - Sinus disorder [Not Recovered/Not Resolved]
  - Oropharyngeal pain [Not Recovered/Not Resolved]
  - Bronchitis [Recovered/Resolved]

NARRATIVE: CASE EVENT DATE: 201901
